FAERS Safety Report 8942180 (Version 1)
Quarter: 2012Q4

REPORT INFORMATION
  Report Type: 
  Country: CN (occurrence: CN)
  Receive Date: 20121202
  Receipt Date: 20121202
  Transmission Date: 20130627
  Serious: Yes (Other)
  Sender: FDA-Public Use
  Company Number: CN-BRISTOL-MYERS SQUIBB COMPANY-16899775

PATIENT
  Age: 50 Year
  Sex: Female

DRUGS (2)
  1. ERBITUX SOLN FOR INF [Suspect]
     Indication: RECTAL CANCER METASTATIC
     Dosage: 28May-28May12,600mg
04Jun12-Aug12,400mg
     Route: 041
     Dates: start: 20120528, end: 201208
  2. TEGAFUR [Concomitant]
     Indication: RECTAL CANCER METASTATIC

REACTIONS (5)
  - Pulmonary fibrosis [Not Recovered/Not Resolved]
  - Paronychia [Recovered/Resolved]
  - Rash follicular [Recovered/Resolved]
  - Abdominal discomfort [Not Recovered/Not Resolved]
  - Fatigue [Not Recovered/Not Resolved]
